FAERS Safety Report 5075143-2 (Version None)
Quarter: 2006Q3

REPORT INFORMATION
  Report Type: 
  Country: None (occurrence: None)
  Receive Date: 20060809
  Receipt Date: 20060728
  Transmission Date: 20061208
  Serious: Yes (Life-Threatening)
  Sender: FDA-Public Use
  Company Number: US-KINGPHARMUSA00001-K200600976

PATIENT
  Age: 49 Year
  Sex: Male

DRUGS (5)
  1. ALTACE [Suspect]
     Indication: CARDIAC FAILURE
     Dosage: 2.5 MG, QD
     Route: 048
     Dates: start: 20050715, end: 20060607
  2. HYDROCORTISONE TAB [Suspect]
     Indication: ADDISON'S DISEASE
     Dosage: 50 MG, QD
     Route: 048
     Dates: start: 20050715
  3. NEORECORMON ^BOEHRINGER MANNHEIM^ [Suspect]
     Dosage: 30 KU, QW
     Route: 058
     Dates: start: 20051015
  4. ZELITREX                                /DEN/ [Suspect]
     Dosage: 1000 MG, QD
     Route: 048
     Dates: start: 20051015, end: 20060607
  5. AERIUS [Suspect]
     Indication: PRURITUS
     Dosage: 1 U, QD
     Route: 048
     Dates: start: 20060520, end: 20060607

REACTIONS (3)
  - ANAEMIA [None]
  - APLASIA PURE RED CELL [None]
  - BONE MARROW FAILURE [None]
